FAERS Safety Report 17833658 (Version 1)
Quarter: 2020Q2

REPORT INFORMATION
  Report Type: Spontaneous
  Country: JP (occurrence: JP)
  Receive Date: 20200528
  Receipt Date: 20200528
  Transmission Date: 20200714
  Serious: Yes (Death, Other)
  Sender: FDA-Public Use
  Company Number: NVSJ2020JP005215

PATIENT
  Age: 86 Year
  Sex: Female

DRUGS (4)
  1. METHOTREXATE. [Concomitant]
     Active Substance: METHOTREXATE
     Indication: STILL^S DISEASE
     Dosage: UNK
     Route: 065
  2. TOCILIZUMAB. [Concomitant]
     Active Substance: TOCILIZUMAB
     Indication: STILL^S DISEASE
     Dosage: UNK
     Route: 065
  3. CYCLOSPORINE. [Suspect]
     Active Substance: CYCLOSPORINE
     Indication: STILL^S DISEASE
     Dosage: UNK
     Route: 065
  4. ETANERCEPT [Concomitant]
     Active Substance: ETANERCEPT
     Indication: STILL^S DISEASE
     Dosage: UNK
     Route: 065

REACTIONS (9)
  - Platelet count decreased [Unknown]
  - Hepatic function abnormal [Unknown]
  - Cytomegalovirus infection [Unknown]
  - Renal impairment [Unknown]
  - Intestinal perforation [Unknown]
  - Death [Fatal]
  - Gastrointestinal haemorrhage [Unknown]
  - Hypoalbuminaemia [Unknown]
  - Product use in unapproved indication [Unknown]
